FAERS Safety Report 9146762 (Version 1)
Quarter: 2013Q1

REPORT INFORMATION
  Report Type: Spontaneous
  Country: US (occurrence: None)
  Receive Date: 20130207
  Receipt Date: 20130207
  Transmission Date: 20140127
  Serious: Yes (Death)
  Sender: FDA-Public Use
  Company Number: 2013010209

PATIENT
  Age: 31 Year
  Sex: Male

DRUGS (6)
  1. ZOLPIDEM (ZOLPIDEM) [Suspect]
     Route: 048
  2. HYDROCODONE (HYDROCODONE) [Suspect]
     Indication: DRUG ABUSE
     Route: 048
  3. DOXYLAMINE (DOXYLAMINE) [Suspect]
     Route: 048
  4. CHLORPHENIRAMNE (CHLORPHENIRAMINE) [Suspect]
     Route: 048
  5. DEXTROMETHORPHAN [Suspect]
     Route: 048
  6. OLANZAPINE (OLANZAPINE) [Suspect]

REACTIONS (3)
  - Drug abuse [None]
  - Respiratory arrest [None]
  - Cardiac arrest [None]
